FAERS Safety Report 5904905-1 (Version None)
Quarter: 2008Q4

REPORT INFORMATION
  Report Type: 
  Country: None (occurrence: None)
  Receive Date: 20081001
  Receipt Date: 20080925
  Transmission Date: 20090506
  Serious: Yes (Other)
  Sender: FDA-Public Use
  Company Number: B0539030A

PATIENT
  Age: 67 Year
  Sex: Female

DRUGS (5)
  1. AMOXICILLIN [Suspect]
     Indication: ENDOCARDITIS PROPHYLAXIS
     Dosage: 3G PER DAY
     Route: 065
     Dates: start: 20070101, end: 20080922
  2. DEROXAT [Concomitant]
     Indication: DRUG USE FOR UNKNOWN INDICATION
     Route: 048
     Dates: end: 20080901
  3. TRIATEC [Concomitant]
     Route: 048
     Dates: end: 20080901
  4. TAHOR [Concomitant]
     Route: 048
  5. NOVOLOG MIX 70/30 [Concomitant]
     Route: 058

REACTIONS (2)
  - EOSINOPHILIA [None]
  - HAEMOLYTIC ANAEMIA [None]
